FAERS Safety Report 6766090-6 (Version None)
Quarter: 2010Q2

REPORT INFORMATION
  Report Type: 
  Country: None (occurrence: None)
  Receive Date: 20100611
  Receipt Date: 20100601
  Transmission Date: 20101027
  Serious: Yes (Hospitalization)
  Sender: FDA-Public Use
  Company Number: PHHY2010US35808

PATIENT
  Sex: Male

DRUGS (2)
  1. GLEEVEC [Suspect]
     Dosage: 400 MG, QD
     Route: 048
  2. LASIX [Concomitant]
     Indication: OEDEMA PERIPHERAL

REACTIONS (2)
  - CARDIAC PACEMAKER INSERTION [None]
  - THROMBOSIS [None]
